FAERS Safety Report 5128502-3 (Version None)
Quarter: 2006Q4

REPORT INFORMATION
  Report Type: 
  Country: None (occurrence: None)
  Receive Date: 20061011
  Receipt Date: 20060927
  Transmission Date: 20070319
  Serious: Yes (Hospitalization)
  Sender: FDA-Public Use
  Company Number: 2006PV022062

PATIENT
  Age: 25 Year
  Sex: Female
  Weight: 56.8811 kg

DRUGS (12)
  1. BYETTA [Suspect]
     Indication: DIABETES MELLITUS
     Dosage: SEE IMAGE
     Route: 058
     Dates: start: 20050901, end: 20051001
  2. BYETTA [Suspect]
     Indication: DIABETES MELLITUS
     Dosage: SEE IMAGE
     Route: 058
     Dates: start: 20051001, end: 20060801
  3. PROGRAF [Suspect]
     Indication: RENAL TRANSPLANT
     Dosage: SEE IMAGE
     Dates: start: 20010618, end: 20060101
  4. PROGRAF [Suspect]
     Indication: RENAL TRANSPLANT
     Dosage: SEE IMAGE
     Dates: start: 20060101
  5. LANTUS [Concomitant]
  6. PREDNISONE TAB [Concomitant]
  7. MIRTAZAPINE [Concomitant]
  8. EFFEXOR [Concomitant]
  9. NORVASC [Concomitant]
  10. LABETALOL HCL [Concomitant]
  11. CLONIDINE [Concomitant]
  12. HUMALOG [Concomitant]

REACTIONS (6)
  - ANAEMIA [None]
  - DRUG LEVEL DECREASED [None]
  - GENERAL PHYSICAL HEALTH DETERIORATION [None]
  - KIDNEY FIBROSIS [None]
  - KIDNEY TRANSPLANT REJECTION [None]
  - WEIGHT DECREASED [None]
